FAERS Safety Report 11431565 (Version 3)
Quarter: 2015Q4

REPORT INFORMATION
  Report Type: Report from Study
  Country: JP (occurrence: JP)
  Receive Date: 20150828
  Receipt Date: 20151214
  Transmission Date: 20160304
  Serious: Yes (Hospitalization)
  Sender: FDA-Public Use
  Company Number: JP-PFIZER INC-2015074288

PATIENT
  Age: 69 Year
  Sex: Male
  Weight: 54 kg

DRUGS (4)
  1. GLYCYRON [Concomitant]
     Active Substance: AMMONIUM GLYCYRRHIZATE\GLYCINE\METHIONINE
     Dosage: 25 MG, 3X/DAY
     Route: 048
     Dates: start: 20140912
  2. PROMAC D [Concomitant]
     Active Substance: NITROFURANTOIN
     Dosage: 75 MG, 2X/DAY
     Route: 048
     Dates: start: 20140829
  3. XALKORI [Suspect]
     Active Substance: CRIZOTINIB
     Indication: NON-SMALL CELL LUNG CANCER
     Dosage: 250 MG, 2X/DAY
     Route: 048
     Dates: start: 20140801, end: 20141217
  4. XALKORI [Suspect]
     Active Substance: CRIZOTINIB
     Dosage: 250 MG, 2X/DAY
     Route: 048
     Dates: start: 20150116, end: 20150313

REACTIONS (2)
  - Renal cyst infection [Recovered/Resolved]
  - Renal cyst infection [Recovered/Resolved]

NARRATIVE: CASE EVENT DATE: 20141218
